FAERS Safety Report 15639842 (Version 1)
Quarter: 2018Q4

REPORT INFORMATION
  Report Type: Spontaneous
  Country: US (occurrence: US)
  Receive Date: 20181120
  Receipt Date: 20181120
  Transmission Date: 20190205
  Serious: Yes (Death)
  Sender: FDA-Public Use
  Company Number: PHHY2018US087245

PATIENT
  Age: 2 Year
  Sex: Female

DRUGS (4)
  1. ETOPOSIDE. [Suspect]
     Active Substance: ETOPOSIDE
     Indication: DIFFUSE LARGE B-CELL LYMPHOMA
     Route: 065
  2. RITUXIMAB. [Suspect]
     Active Substance: RITUXIMAB
     Indication: DIFFUSE LARGE B-CELL LYMPHOMA
     Route: 065
  3. IFOSFAMIDE. [Suspect]
     Active Substance: IFOSFAMIDE
     Indication: DIFFUSE LARGE B-CELL LYMPHOMA
     Route: 065
  4. CARBOPLATIN. [Suspect]
     Active Substance: CARBOPLATIN
     Indication: DIFFUSE LARGE B-CELL LYMPHOMA
     Route: 065

REACTIONS (9)
  - Horner^s syndrome [Fatal]
  - Product use in unapproved indication [Unknown]
  - Mydriasis [Fatal]
  - Dysphonia [Fatal]
  - Paralysis [Fatal]
  - Tongue disorder [Fatal]
  - Diffuse large B-cell lymphoma refractory [Fatal]
  - Eyelid ptosis [Fatal]
  - Dysphagia [Fatal]
